FAERS Safety Report 8603438-1 (Version None)
Quarter: 2012Q3

REPORT INFORMATION
  Report Type: 
  Country: None (occurrence: None)
  Receive Date: 20120817
  Receipt Date: 20120810
  Transmission Date: 20120928
  Serious: Yes (Hospitalization)
  Sender: FDA-Public Use
  Company Number: US-B.I. PHARMACEUTICALS,INC./RIDGEFIELD-2012-BP-18833BP

PATIENT
  Sex: Female

DRUGS (8)
  1. FLUTICASONE PROPIONATE [Concomitant]
     Indication: LUNG INFECTION
     Route: 055
     Dates: start: 20120808
  2. AMBIEN [Concomitant]
     Indication: SLEEP DISORDER
     Route: 048
  3. SPIRIVA [Suspect]
     Route: 048
  4. PREDNISONE TAB [Concomitant]
     Indication: LUNG INFECTION
     Route: 048
     Dates: start: 20120808
  5. SERTRALINE HYDROCHLORIDE [Concomitant]
     Indication: DEPRESSION
     Route: 048
  6. VERAMYST [Concomitant]
     Dates: start: 20120808
  7. SPIRIVA [Suspect]
     Indication: BRONCHITIS CHRONIC
     Dosage: 18 MCG
     Route: 055
     Dates: start: 20120808
  8. MOBIC [Suspect]
     Indication: ARTHRITIS
     Dosage: 15 MG
     Route: 048

REACTIONS (4)
  - PNEUMONIA [None]
  - LUNG INFECTION [None]
  - INSOMNIA [None]
  - INCORRECT ROUTE OF DRUG ADMINISTRATION [None]
